FAERS Safety Report 23452048 (Version 1)
Quarter: 2024Q1

REPORT INFORMATION
  Report Type: Spontaneous
  Country: US (occurrence: None)
  Receive Date: 20240127
  Receipt Date: 20240127
  Transmission Date: 20240409
  Serious: Yes (Death)
  Sender: FDA-Public Use
  Company Number: None

PATIENT
  Sex: Female

DRUGS (3)
  1. LENALIDOMIDE [Suspect]
     Active Substance: LENALIDOMIDE
     Indication: Plasma cell myeloma
     Dosage: 15 MG ORAL??TAKE ONE CAPSULE EVERY 48 HOURS FOR TWO WEEKS ON, THEN TWO WEEKS OFF?
     Route: 048
     Dates: start: 20230808
  2. DEXAMETHASONE [Concomitant]
     Active Substance: DEXAMETHASONE
  3. VELCADE [Concomitant]
     Active Substance: BORTEZOMIB

REACTIONS (1)
  - Death [None]
